FAERS Safety Report 9054905 (Version 3)
Quarter: 2013Q2

REPORT INFORMATION
  Report Type: Spontaneous
  Country: BR (occurrence: BR)
  Receive Date: 20130208
  Receipt Date: 20130628
  Transmission Date: 20140414
  Serious: Yes (Other)
  Sender: FDA-Public Use
  Company Number: BR-SHIRE-ALL1-2013-00670

PATIENT
  Age: 31 Year
  Sex: Female

DRUGS (6)
  1. MEZAVANT [Suspect]
     Indication: COLITIS
     Dosage: 1 DF, 1X/DAY:QD
     Route: 048
     Dates: start: 20121222
  2. MATERNA                            /02266601/ [Concomitant]
     Indication: PRODUCT USED FOR UNKNOWN INDICATION
     Dosage: 1 DF, 1X/DAY:QD
     Route: 065
     Dates: start: 201210
  3. BUSCOPAN PLUS [Concomitant]
     Indication: PRODUCT USED FOR UNKNOWN INDICATION
     Dosage: 1 DF, 1X/DAY:QD
     Route: 065
     Dates: start: 201209
  4. INIBINA [Concomitant]
     Indication: PRODUCT USED FOR UNKNOWN INDICATION
     Dosage: 2 DF, 1X/DAY:QD
     Route: 065
     Dates: start: 201301
  5. VI FERRIN [Concomitant]
     Indication: PRODUCT USED FOR UNKNOWN INDICATION
     Dosage: 2 DF, 1X/DAY:QD
     Route: 065
     Dates: start: 201301
  6. UTROGESTAN [Concomitant]
     Indication: PRODUCT USED FOR UNKNOWN INDICATION
     Dosage: 2 DF, 1X/DAY:QD
     Route: 065
     Dates: start: 201301

REACTIONS (4)
  - Abortion threatened [Unknown]
  - Faeces discoloured [Unknown]
  - Exposure during pregnancy [Not Recovered/Not Resolved]
  - Off label use [Not Recovered/Not Resolved]
